FAERS Safety Report 4458402-3 (Version None)
Quarter: 2004Q3

REPORT INFORMATION
  Report Type: 
  Country: None (occurrence: None)
  Receive Date: 20040924
  Receipt Date: 20030609
  Transmission Date: 20050211
  Serious: Yes (Hospitalization, Disabling)
  Sender: FDA-Public Use
  Company Number: US-MERCK-0306USA01224

PATIENT
  Age: 64 Year
  Sex: Male
  Weight: 103 kg

DRUGS (36)
  1. TYLENOL [Concomitant]
     Indication: PAIN
     Route: 065
     Dates: start: 19990101, end: 20040101
  2. ACETAMINOPHEN AND HYDROCODONE BITARTRATE [Concomitant]
     Indication: PAIN
     Route: 065
  3. ACETIC ACID [Concomitant]
     Indication: ABDOMINAL PAIN UPPER
     Route: 001
  4. ALBUTEROL [Concomitant]
     Indication: HYPERSENSITIVITY
     Route: 065
  5. AMLODIPINE MALEATE [Concomitant]
     Indication: CARDIAC DISORDER
     Route: 065
     Dates: start: 20011206
  6. ASPIRIN [Concomitant]
     Indication: PROPHYLAXIS
     Route: 065
     Dates: start: 20011201
  7. ASPIRIN [Concomitant]
     Indication: ARTHRITIS
     Route: 065
     Dates: start: 19990101, end: 20030101
  8. ASPIRIN [Concomitant]
     Indication: PAIN
     Route: 065
     Dates: start: 19990101, end: 20030101
  9. BACLOFEN [Concomitant]
     Indication: MUSCLE SPASMS
     Route: 065
  10. BECONASE [Concomitant]
     Indication: HYPERSENSITIVITY
     Route: 065
  11. ARTIFICIAL TEARS [Concomitant]
     Route: 065
  12. BUPROPION HYDROCHLORIDE [Concomitant]
     Indication: DEPRESSION
     Route: 065
     Dates: start: 20000401, end: 20030301
  13. CARBAMIDE PEROXIDE [Concomitant]
     Indication: EAR DISORDER
     Route: 065
  14. CLOPIDOGREL BISULFATE [Concomitant]
     Indication: CARDIAC DISORDER
     Route: 065
  15. CLOTRIMAZOLE [Concomitant]
     Route: 065
  16. PROZAC [Concomitant]
     Indication: DEPRESSION
     Route: 065
  17. NEURONTIN [Concomitant]
     Indication: NEURALGIA
     Route: 065
  18. ADVIL [Concomitant]
     Indication: PAIN
     Route: 065
     Dates: start: 19990101, end: 20040101
  19. LANSOPRAZOLE [Concomitant]
     Indication: PEPTIC ULCER
     Route: 065
     Dates: start: 20020201
  20. LOVASTATIN [Concomitant]
     Route: 065
  21. METHOCARBAMOL [Concomitant]
     Indication: MYALGIA
     Route: 065
  22. METOPROLOL [Concomitant]
     Indication: HYPERTENSION
     Route: 065
     Dates: start: 20011201
  23. METOPROLOL [Concomitant]
     Indication: CARDIAC DISORDER
     Route: 065
     Dates: start: 20011201
  24. MIRTAZAPINE [Concomitant]
     Indication: DEPRESSION
     Route: 065
  25. NITROGLYCERIN [Concomitant]
     Indication: CHEST PAIN
     Route: 065
  26. NYSTATIN [Concomitant]
     Indication: RASH
     Route: 065
  27. OLOPATADINE HYDROCHLORIDE [Concomitant]
     Indication: EYE DISORDER
     Route: 047
  28. PHENYLPROPANOLAMINE [Concomitant]
     Indication: NASOPHARYNGITIS
     Route: 065
  29. PSEUDOEPHEDRINE [Concomitant]
     Indication: HYPERSENSITIVITY
     Route: 065
  30. PSYLLIUM HUSK [Concomitant]
     Route: 048
  31. RABEPRAZOLE SODIUM [Concomitant]
     Indication: PEPTIC ULCER
     Route: 065
  32. VIOXX [Suspect]
     Indication: PAIN
     Route: 048
     Dates: start: 20000216, end: 20020423
  33. VIOXX [Suspect]
     Indication: MUSCLE SPASMS
     Route: 048
     Dates: start: 20000216, end: 20020423
  34. ZOCOR [Concomitant]
     Indication: BLOOD CHOLESTEROL ABNORMAL
     Route: 048
     Dates: start: 20011201
  35. TETRACYCLINE [Concomitant]
     Indication: EYE INFECTION
     Route: 065
  36. AMBIEN [Concomitant]
     Indication: SLEEP DISORDER
     Route: 065

REACTIONS (18)
  - ANGER [None]
  - BLOOD CHOLESTEROL INCREASED [None]
  - CHRONIC OBSTRUCTIVE AIRWAYS DISEASE [None]
  - CORONARY ARTERY DISEASE [None]
  - DEPRESSION [None]
  - DIABETES MELLITUS NON-INSULIN-DEPENDENT [None]
  - EAR DISORDER [None]
  - EMOTIONAL DISTRESS [None]
  - EYE INFECTION [None]
  - FEAR [None]
  - HYPERTENSION [None]
  - MYOCARDIAL INFARCTION [None]
  - NASOPHARYNGITIS [None]
  - NEURALGIA [None]
  - OEDEMA PERIPHERAL [None]
  - PEPTIC ULCER [None]
  - RASH [None]
  - SLEEP DISORDER [None]
